FAERS Safety Report 24768209 (Version 3)
Quarter: 2025Q1

REPORT INFORMATION
  Report Type: Spontaneous
  Country: DE (occurrence: DE)
  Receive Date: 20241223
  Receipt Date: 20250120
  Transmission Date: 20250409
  Serious: Yes (Hospitalization, Other)
  Sender: JOHNSON AND JOHNSON
  Company Number: DE-BAYER-2024A179977

PATIENT
  Age: 76 Year
  Sex: Female

DRUGS (1)
  1. XARELTO [Suspect]
     Active Substance: RIVAROXABAN
     Indication: Product used for unknown indication
     Route: 048

REACTIONS (4)
  - Cerebrovascular accident [Unknown]
  - Cerebral thrombosis [Recovered/Resolved]
  - Endoscopy gastrointestinal [Unknown]
  - Colonoscopy [Unknown]

NARRATIVE: CASE EVENT DATE: 20241205
